FAERS Safety Report 24882755 (Version 1)
Quarter: 2025Q1

REPORT INFORMATION
  Report Type: Spontaneous
  Country: US (occurrence: US)
  Receive Date: 20250124
  Receipt Date: 20250124
  Transmission Date: 20250408
  Serious: Yes (Other)
  Sender: ELI LILLY AND COMPANY
  Company Number: US-ELI_LILLY_AND_COMPANY-US202501013386

PATIENT
  Age: 25 Year
  Sex: Female

DRUGS (2)
  1. HUMALOG KWIKPEN [Suspect]
     Active Substance: INSULIN LISPRO
     Indication: Insulin resistance
     Dosage: 50 U, EACH MORNING (BREASKFAST)
     Route: 065
     Dates: start: 2009
  2. HUMALOG KWIKPEN [Suspect]
     Active Substance: INSULIN LISPRO
     Indication: Type 1 diabetes mellitus
     Dosage: 60 U, EACH EVENING (DINNER)
     Route: 065
     Dates: start: 2009

REACTIONS (2)
  - Hernia [Not Recovered/Not Resolved]
  - Blood glucose increased [Unknown]
